FAERS Safety Report 19057259 (Version 3)
Quarter: 2021Q2

REPORT INFORMATION
  Report Type: Spontaneous
  Country: US (occurrence: US)
  Receive Date: 20210325
  Receipt Date: 20210427
  Transmission Date: 20210717
  Serious: Yes (Other)
  Sender: FDA-Public Use
  Company Number: US-TAKEDA-2021TUS016769

PATIENT
  Age: 67 Year
  Sex: Female
  Weight: 68 kg

DRUGS (14)
  1. AZULFIDINE [Concomitant]
     Active Substance: SULFASALAZINE
     Dosage: 1000 MILLIGRAM, QD
  2. NORCO [Concomitant]
     Active Substance: ACETAMINOPHEN\HYDROCODONE BITARTRATE
     Dosage: UNK
  3. PHENERGAN COMPOUND EXPECTORANT [Concomitant]
     Dosage: UNK
  4. SULFASALAZINE. [Concomitant]
     Active Substance: SULFASALAZINE
     Dosage: 500 MILLIGRAM
  5. AMRIX [Concomitant]
     Active Substance: CYCLOBENZAPRINE HYDROCHLORIDE
     Indication: MUSCLE SPASMS
     Dosage: UNK
  6. ENTYVIO [Suspect]
     Active Substance: VEDOLIZUMAB
     Indication: COLITIS ULCERATIVE
  7. DOXEPIN [Concomitant]
     Active Substance: DOXEPIN
     Indication: MUSCLE SPASMS
     Dosage: 50 MILLIGRAM, QD
  8. ALDACTONE 50 HCT [Concomitant]
     Active Substance: HYDROCHLOROTHIAZIDE\SPIRONOLACTONE
     Dosage: 25 MILLIGRAM
  9. ENTYVIO [Suspect]
     Active Substance: VEDOLIZUMAB
     Indication: CROHN^S DISEASE
  10. ACIPHEX [Concomitant]
     Active Substance: RABEPRAZOLE SODIUM
     Dosage: UNK
  11. FLEXERIL [CEFIXIME] [Concomitant]
     Active Substance: CEFIXIME
     Dosage: UNK
  12. VALIUM [Concomitant]
     Active Substance: DIAZEPAM
     Dosage: 5 MILLIGRAM
  13. ENTYVIO [Suspect]
     Active Substance: VEDOLIZUMAB
     Indication: DIVERTICULUM
     Dosage: 300 MILLIGRAM
     Route: 042
     Dates: start: 202012
  14. DALMANE [Concomitant]
     Active Substance: FLURAZEPAM HYDROCHLORIDE
     Dosage: 15 MILLIGRAM

REACTIONS (19)
  - Myalgia [Unknown]
  - Vision blurred [Unknown]
  - Weight decreased [Unknown]
  - Musculoskeletal chest pain [Unknown]
  - Back pain [Recovering/Resolving]
  - Rectal haemorrhage [Unknown]
  - Blood pressure decreased [Unknown]
  - Amnesia [Unknown]
  - Dizziness [Unknown]
  - Frequent bowel movements [Unknown]
  - Blister [Unknown]
  - Headache [Unknown]
  - Product dose omission issue [Unknown]
  - Vitreous floaters [Unknown]
  - Inflammation [Recovered/Resolved]
  - Neck pain [Recovering/Resolving]
  - Diarrhoea [Recovered/Resolved]
  - Fatigue [Unknown]
  - Muscle spasms [Unknown]

NARRATIVE: CASE EVENT DATE: 20210418
